FAERS Safety Report 19735040 (Version 3)
Quarter: 2022Q1

REPORT INFORMATION
  Report Type: Spontaneous
  Country: US (occurrence: US)
  Receive Date: 20210823
  Receipt Date: 20220207
  Transmission Date: 20220423
  Serious: No
  Sender: FDA-Public Use
  Company Number: US-VERTEX PHARMACEUTICALS-2021-012495

PATIENT
  Age: 9 Year
  Sex: Female

DRUGS (1)
  1. TRIKAFTA [Suspect]
     Active Substance: ELEXACAFTOR\IVACAFTOR\TEZACAFTOR
     Indication: Cystic fibrosis
     Dosage: FULL DOSE
     Route: 048
     Dates: start: 20210805, end: 202108

REACTIONS (2)
  - Rash pruritic [Unknown]
  - Rash erythematous [Unknown]

NARRATIVE: CASE EVENT DATE: 20210812
